FAERS Safety Report 17023745 (Version 4)
Quarter: 2020Q2

REPORT INFORMATION
  Report Type: Report from Study
  Country: US (occurrence: US)
  Receive Date: 20191113
  Receipt Date: 20200422
  Transmission Date: 20200713
  Serious: Yes (Other)
  Sender: FDA-Public Use
  Company Number: NVSC2019US012617

PATIENT
  Age: 43 Year
  Sex: Female

DRUGS (2)
  1. GILENYA [Suspect]
     Active Substance: FINGOLIMOD HYDROCHLORIDE
     Dosage: 0.5 MG, QD
     Route: 048
  2. GILENYA [Suspect]
     Active Substance: FINGOLIMOD HYDROCHLORIDE
     Indication: MULTIPLE SCLEROSIS
     Dosage: 0.5 MG, QD
     Route: 048
     Dates: start: 20191019

REACTIONS (15)
  - Rash [Unknown]
  - Bone pain [Unknown]
  - Asthenia [Unknown]
  - Nausea [Unknown]
  - Dizziness [Unknown]
  - Feeling cold [Unknown]
  - Visual impairment [Unknown]
  - Arthralgia [Unknown]
  - Insomnia [Unknown]
  - Ophthalmological examination abnormal [Unknown]
  - Nasopharyngitis [Unknown]
  - Pain in extremity [Unknown]
  - Headache [Unknown]
  - Kidney infection [Unknown]
  - Fatigue [Unknown]

NARRATIVE: CASE EVENT DATE: 20191019
